FAERS Safety Report 10990793 (Version 13)
Quarter: 2016Q4

REPORT INFORMATION
  Report Type: Report from Study
  Country: AU (occurrence: AU)
  Receive Date: 20150406
  Receipt Date: 20161212
  Transmission Date: 20170206
  Serious: Yes (Hospitalization)
  Sender: FDA-Public Use
  Company Number: AU-AMGEN-AUSCT2015030549

PATIENT
  Age: 72 Year
  Sex: Female
  Weight: 69 kg

DRUGS (16)
  1. PARACETAMOL [Concomitant]
     Active Substance: ACETAMINOPHEN
     Indication: PAIN
     Dosage: 1 G, AS NECESSARY
     Route: 048
     Dates: start: 20130529, end: 20150414
  2. NORMAFIBE [Concomitant]
     Indication: CONSTIPATION
     Dosage: 2 UNK, AS NECESSARY
     Route: 048
     Dates: start: 20130307
  3. MAXOLON [Concomitant]
     Active Substance: METOCLOPRAMIDE HYDROCHLORIDE
     Indication: NAUSEA
     Dosage: 10 MG, AS NECESSARY
     Route: 048
     Dates: start: 20140319
  4. ZOMETA [Concomitant]
     Active Substance: ZOLEDRONIC ACID
     Indication: PROPHYLAXIS
     Dosage: 4 MG, UNK
     Route: 042
     Dates: start: 20130314
  5. ONDANSETRON [Concomitant]
     Active Substance: ONDANSETRON
     Indication: NAUSEA
     Dosage: 4-8 MG, AS NECESSARY
     Dates: start: 20120821
  6. PALONOSETRON [Concomitant]
     Active Substance: PALONOSETRON
     Indication: NAUSEA
     Dosage: 250 MUG, UNK
     Route: 042
     Dates: start: 20130313
  7. SOMAC [Concomitant]
     Active Substance: PANTOPRAZOLE SODIUM
     Indication: GASTROOESOPHAGEAL REFLUX PROPHYLAXIS
     Dosage: 40 MG, BID
     Route: 048
     Dates: start: 20120322
  8. ROBITUSSIN PE [Concomitant]
     Indication: UPPER RESPIRATORY TRACT INFECTION
     Dosage: 10 ML, AS NECESSARY
     Route: 048
     Dates: start: 20140911
  9. COLOXYL WITH SENNA [Concomitant]
     Active Substance: DOCUSATE\SENNOSIDES
     Indication: CONSTIPATION
     Dosage: 2 UNIT, AS NECESSARY
     Route: 048
     Dates: start: 20141203
  10. URAL [Concomitant]
     Indication: PROPHYLAXIS
     Dosage: 1 UNIT, QD
     Route: 048
     Dates: start: 20150218
  11. TEMAZEPAM. [Concomitant]
     Active Substance: TEMAZEPAM
     Indication: INSOMNIA
     Dosage: 10 MG, AS NECESSARY
     Route: 048
     Dates: start: 20130313
  12. PARACETAMOL [Concomitant]
     Active Substance: ACETAMINOPHEN
     Indication: PYREXIA
  13. PERINDOPRIL [Concomitant]
     Active Substance: PERINDOPRIL
     Indication: CEREBROVASCULAR ACCIDENT
     Dosage: 2.5 MG, UNK
     Route: 048
     Dates: start: 20141029
  14. CARFILZOMIB [Suspect]
     Active Substance: CARFILZOMIB
     Indication: PLASMA CELL MYELOMA
     Dosage: 56 MG/M2, PER CHEMO REGIM
     Route: 042
     Dates: start: 20130306, end: 20150326
  15. DEXAMETHASONE. [Suspect]
     Active Substance: DEXAMETHASONE
     Indication: PLASMA CELL MYELOMA
     Dosage: 8 MG, PER CHEMO REGIM
     Route: 048
     Dates: start: 20130306, end: 20141106
  16. MAGMIN [Concomitant]
     Active Substance: MAGNESIUM ASPARTATE
     Indication: MUSCLE SPASMS
     Dosage: 2 UNK, UNK
     Route: 048
     Dates: start: 201208

REACTIONS (1)
  - Herpes simplex encephalitis [Recovered/Resolved]

NARRATIVE: CASE EVENT DATE: 20150328
